FAERS Safety Report 5270249-7 (Version None)
Quarter: 2007Q1

REPORT INFORMATION
  Report Type: 
  Country: None (occurrence: None)
  Receive Date: 20070320
  Receipt Date: 20011001
  Transmission Date: 20070707
  Serious: Yes (Life-Threatening)
  Sender: FDA-Public Use
  Company Number: US-BRISTOL-MYERS SQUIBB COMPANY-13581376

PATIENT
  Age: 48 Year
  Sex: Female

DRUGS (3)
  1. SUSTIVA [Suspect]
  2. RITONAVIR [Concomitant]
  3. PREVEON [Concomitant]

REACTIONS (1)
  - RETROPERITONEAL HAEMORRHAGE [None]
